FAERS Safety Report 9636178 (Version 1)
Quarter: 2013Q4

REPORT INFORMATION
  Report Type: Spontaneous
  Country: US (occurrence: US)
  Receive Date: 20131021
  Receipt Date: 20131021
  Transmission Date: 20140711
  Serious: No
  Sender: FDA-Public Use
  Company Number: US-TEVA-438964USA

PATIENT
  Sex: Female

DRUGS (1)
  1. PROAIR HFA [Suspect]
     Indication: DYSPNOEA
     Route: 055

REACTIONS (4)
  - Drug ineffective [Unknown]
  - Extra dose administered [Unknown]
  - Incorrect product storage [Unknown]
  - Device malfunction [Unknown]
